FAERS Safety Report 7720570-5 (Version None)
Quarter: 2011Q3

REPORT INFORMATION
  Report Type: 
  Country: None (occurrence: None)
  Receive Date: 20110831
  Receipt Date: 20110826
  Transmission Date: 20111222
  Serious: Yes (Other)
  Sender: FDA-Public Use
  Company Number: CA-AMGEN-CANSP2011034547

PATIENT
  Age: 67 Year
  Sex: Female
  Weight: 48.98 kg

DRUGS (3)
  1. VITAMIN D [Concomitant]
     Route: 048
  2. CALCIUM CARBONATE [Concomitant]
     Route: 048
  3. PROLIA [Suspect]
     Indication: OSTEOPOROSIS
     Dosage: 60 MG, Q6MO
     Route: 058
     Dates: start: 20101201

REACTIONS (1)
  - ALOPECIA [None]
